FAERS Safety Report 8170321-8 (Version None)
Quarter: 2012Q1

REPORT INFORMATION
  Report Type: 
  Country: None (occurrence: None)
  Receive Date: 20120228
  Receipt Date: 20120223
  Transmission Date: 20120608
  Serious: Yes (Death, Hospitalization, Other)
  Sender: FDA-Public Use
  Company Number: US-ASTELLAS-2011US006905

PATIENT
  Sex: Female
  Weight: 64 kg

DRUGS (4)
  1. ERLOTINIB HYDROCHLORIDE [Suspect]
     Indication: NON-SMALL CELL LUNG CANCER
     Dosage: 100 MG QD, DAYS 2-17, CYCLIC
     Route: 048
     Dates: start: 20110217, end: 20110929
  2. PEMETREXED [Suspect]
     Indication: LUNG ADENOCARCINOMA METASTATIC
  3. ERLOTINIB HYDROCHLORIDE [Suspect]
     Indication: LUNG ADENOCARCINOMA METASTATIC
  4. PEMETREXED [Suspect]
     Indication: NON-SMALL CELL LUNG CANCER
     Dosage: 500 MG/M2, Q3W
     Route: 042
     Dates: start: 20110217, end: 20110915

REACTIONS (10)
  - DEATH [None]
  - METASTASES TO BONE [None]
  - INAPPROPRIATE SCHEDULE OF DRUG ADMINISTRATION [None]
  - MALIGNANT PLEURAL EFFUSION [None]
  - SEPSIS [None]
  - NEOPLASM MALIGNANT [None]
  - INCORRECT DOSE ADMINISTERED [None]
  - PNEUMONITIS [None]
  - PNEUMONIA [None]
  - HYPOKALAEMIA [None]
